FAERS Safety Report 12923527 (Version 1)
Quarter: 2016Q4

REPORT INFORMATION
  Report Type: Spontaneous
  Country: US (occurrence: US)
  Receive Date: 20161109
  Receipt Date: 20161109
  Transmission Date: 20170207
  Serious: No
  Sender: FDA-Public Use
  Company Number: US-PFIZER INC-2016516781

PATIENT
  Age: 51 Year
  Sex: Male
  Weight: 90.72 kg

DRUGS (4)
  1. OXYCODONE [Concomitant]
     Active Substance: OXYCODONE
     Indication: BREAKTHROUGH PAIN
     Dosage: ONE TO TWO 30MG TABLETS EVERY 6 HOURS AS NEEDED
  2. LANSOPRAZOLE. [Concomitant]
     Active Substance: LANSOPRAZOLE
     Indication: GASTROOESOPHAGEAL REFLUX DISEASE
     Dosage: 30 MG, DAILY
     Dates: start: 2014
  3. VIAGRA [Suspect]
     Active Substance: SILDENAFIL CITRATE
     Indication: ERECTILE DYSFUNCTION
     Dosage: ONE HALF TO ONE 100MG TABLET BY MOUTH AS NEEDED
     Route: 048
  4. OXYCONTIN [Concomitant]
     Active Substance: OXYCODONE HYDROCHLORIDE
     Indication: PAIN
     Dosage: 240 MG/THREE 80MG TABLETS IN THE MORNING AND EVENING

REACTIONS (2)
  - Product contamination [Unknown]
  - False positive investigation result [Unknown]

NARRATIVE: CASE EVENT DATE: 20160816
